FAERS Safety Report 21585815 (Version 1)
Quarter: 2022Q4

REPORT INFORMATION
  Report Type: Spontaneous
  Country: ES (occurrence: ES)
  Receive Date: 20221111
  Receipt Date: 20221111
  Transmission Date: 20230112
  Serious: Yes (Other)
  Sender: FDA-Public Use
  Company Number: None

PATIENT
  Age: 76 Year
  Sex: Male

DRUGS (8)
  1. CLARITHROMYCIN [Interacting]
     Active Substance: CLARITHROMYCIN
     Indication: Product used for unknown indication
     Dosage: COMP C/12 H  (967A)DURATION :2 DAYS.
     Dates: start: 20220928, end: 20220929
  2. CLARITHROMYCIN [Interacting]
     Active Substance: CLARITHROMYCIN
     Indication: Bronchitis
  3. AMLODIPINE BESYLATE\HYDROCHLOROTHIAZIDE\OLMESARTAN MEDOXOMIL [Interacting]
     Active Substance: AMLODIPINE BESYLATE\HYDROCHLOROTHIAZIDE\OLMESARTAN MEDOXOMIL
     Indication: Arteriosclerosis
     Dosage: 1.0 COMP C/24 H   , 40 MG/5 MG/25 MG , 28 TABLETS,THERAPY END DATE:NOT ASKED.
     Dates: start: 20131210
  4. CLOPIDOGREL CINFAMED [Concomitant]
     Indication: Arteriosclerosis
     Dosage: 75.0 MG DE   , 84 TABLETS,FORM STRENGTH :75 MG ,
     Dates: start: 20210513
  5. METFORMIN HYDROCHLORIDE\SITAGLIPTIN PHOSPHATE [Concomitant]
     Active Substance: METFORMIN HYDROCHLORIDE\SITAGLIPTIN PHOSPHATE
     Indication: Type 2 diabetes mellitus
     Dosage: 1.0 COMP DECE   ,50 MG/1000 MG, 56 TABLETS
     Dates: start: 20151127
  6. PANTOPRAZOLE PENSA [Concomitant]
     Indication: Arteriosclerosis
     Dosage: 20.0 MG DE   ,FORM STRENGTH 20 MG EFG, 56 TABLETS (BLISTER)
     Dates: start: 20210513
  7. TORASEMIDE CINFA [Concomitant]
     Indication: Hypertension
     Dosage: 5.0 MG DECO  ,FORM STRENGTH: 5 MG ,EFG, 30 TABLETS
     Dates: start: 20220708
  8. SIMVASTATIN CINFA [Concomitant]
     Indication: Hyperlipidaemia
     Dosage: 20.0 MG CE  ,FORM STRENGTH :20 MG , 28 TABLETS
     Dates: start: 20150203

REACTIONS (3)
  - Syncope [Recovered/Resolved]
  - Hypotension [Recovered/Resolved]
  - Drug interaction [Unknown]

NARRATIVE: CASE EVENT DATE: 20220928
